FAERS Safety Report 11651240 (Version 1)
Quarter: 2015Q4

REPORT INFORMATION
  Report Type: Spontaneous
  Country: CN (occurrence: CN)
  Receive Date: 20151021
  Receipt Date: 20151021
  Transmission Date: 20160304
  Serious: Yes (Hospitalization, Other)
  Sender: FDA-Public Use
  Company Number: CN-GILEAD-2012-0049391

PATIENT
  Age: 48 Year
  Sex: Male

DRUGS (2)
  1. ADEFOVIR DIPIVOXIL. [Suspect]
     Active Substance: ADEFOVIR DIPIVOXIL
     Dosage: UNK
     Route: 065
     Dates: end: 20100722
  2. ADEFOVIR DIPIVOXIL. [Suspect]
     Active Substance: ADEFOVIR DIPIVOXIL
     Indication: PRODUCT USED FOR UNKNOWN INDICATION
     Dosage: 10 MG, UNK
     Route: 065
     Dates: start: 2007, end: 20100722

REACTIONS (13)
  - Urine phosphorus increased [Unknown]
  - Blood alkaline phosphatase increased [Unknown]
  - Blood phosphorus decreased [Unknown]
  - Acquired aminoaciduria [Unknown]
  - Glycosuria [Unknown]
  - Blood potassium decreased [Unknown]
  - Osteomalacia [Recovered/Resolved]
  - Fanconi syndrome acquired [Recovered/Resolved]
  - Hypophosphataemia [Recovered/Resolved]
  - Nocturia [Unknown]
  - Pain [Unknown]
  - Urine potassium increased [Unknown]
  - Proteinuria [Unknown]

NARRATIVE: CASE EVENT DATE: 200710
